FAERS Safety Report 12419303 (Version 3)
Quarter: 2016Q4

REPORT INFORMATION
  Report Type: Spontaneous
  Country: JP (occurrence: JP)
  Receive Date: 20160531
  Receipt Date: 20161102
  Transmission Date: 20170207
  Serious: Yes (Hospitalization, Other)
  Sender: FDA-Public Use
  Company Number: JP-CELGENEUS-JPN-2016015997

PATIENT
  Age: 67 Year
  Sex: Male
  Weight: 71.9 kg

DRUGS (187)
  1. LOXOPROFEN SODIUM [Concomitant]
     Active Substance: LOXOPROFEN SODIUM
     Route: 065
     Dates: start: 20160301
  2. POVIDONE-IODINE. [Concomitant]
     Active Substance: POVIDONE-IODINE
     Indication: PRODUCT USED FOR UNKNOWN INDICATION
     Route: 065
     Dates: start: 20100708, end: 20140603
  3. ZOLEDRONIC ACID HYDRATE [Concomitant]
     Active Substance: ZOLEDRONIC ACID
     Indication: PRODUCT USED FOR UNKNOWN INDICATION
     Route: 065
     Dates: start: 20120213, end: 20120213
  4. PURIFIED SODIUM HYALURONATE [Concomitant]
     Indication: PRODUCT USED FOR UNKNOWN INDICATION
     Route: 065
     Dates: start: 20120424, end: 20120508
  5. PURIFIED SODIUM HYALURONATE [Concomitant]
     Route: 065
     Dates: start: 20121127, end: 20121228
  6. PREGABALIN. [Concomitant]
     Active Substance: PREGABALIN
     Route: 065
     Dates: start: 20120827, end: 20120910
  7. PREGABALIN. [Concomitant]
     Active Substance: PREGABALIN
     Route: 065
     Dates: start: 20160415
  8. FUROSEMIDE. [Concomitant]
     Active Substance: FUROSEMIDE
     Route: 065
     Dates: start: 20140924, end: 20150714
  9. LEVOFLOXACIN. [Concomitant]
     Active Substance: LEVOFLOXACIN
     Route: 065
     Dates: start: 20130522, end: 20130526
  10. GATIFLOXACIN HYDRATE [Concomitant]
     Indication: ADVERSE EVENT
     Route: 065
     Dates: start: 20130110, end: 20130307
  11. BROMFENAC SODIUM HYDRATE [Concomitant]
     Route: 065
     Dates: start: 20140307, end: 20140401
  12. FLUOROMETHOLONE. [Concomitant]
     Active Substance: FLUOROMETHOLONE
     Indication: ADVERSE EVENT
     Route: 065
     Dates: start: 20130308, end: 20130321
  13. PRANOPROFEN [Concomitant]
     Active Substance: PRANOPROFEN
     Indication: ADVERSE EVENT
     Route: 065
     Dates: start: 20130322, end: 20140306
  14. PL GRANULE [Concomitant]
     Indication: ADVERSE EVENT
     Route: 065
     Dates: start: 20130522, end: 20130526
  15. INTAL [Concomitant]
     Active Substance: CROMOLYN SODIUM
     Route: 065
     Dates: start: 20160921
  16. CLOPERASTINE HYDROCHLORIDE [Concomitant]
     Active Substance: CLOPERASTINE HYDROCHLORIDE
     Route: 065
     Dates: start: 20140604, end: 20140608
  17. CEFEPIME [Concomitant]
     Active Substance: CEFEPIME HYDROCHLORIDE
     Route: 065
     Dates: start: 20150107, end: 20150107
  18. HEPARIN SODIUM. [Concomitant]
     Active Substance: HEPARIN SODIUM
     Route: 065
     Dates: start: 20160203, end: 20160213
  19. MIYA-BM [Concomitant]
     Active Substance: CLOSTRIDIUM BUTYRICUM SPORES STRAIN M-55
     Route: 065
     Dates: start: 20160207
  20. INSULIN HUMAN [Concomitant]
     Active Substance: INSULIN HUMAN
     Indication: ADVERSE EVENT
     Route: 065
     Dates: start: 20160128, end: 20160406
  21. ALBUMIN TANNATE [Concomitant]
     Active Substance: ALBUMIN BOVINE\TANNIC ACID
     Route: 065
     Dates: start: 20160921
  22. FLUNITRAZEPAM [Concomitant]
     Active Substance: FLUNITRAZEPAM
     Indication: ADVERSE EVENT
     Route: 065
     Dates: start: 20160302, end: 20160324
  23. BETHANECHOL CHLORIDE. [Concomitant]
     Active Substance: BETHANECHOL CHLORIDE
     Indication: PRODUCT USED FOR UNKNOWN INDICATION
     Route: 065
     Dates: start: 20160307
  24. DEXAMETHASONE. [Suspect]
     Active Substance: DEXAMETHASONE
     Route: 048
     Dates: start: 20111122
  25. FLUCONAZOLE. [Concomitant]
     Active Substance: FLUCONAZOLE
     Indication: PRODUCT USED FOR UNKNOWN INDICATION
     Route: 065
     Dates: start: 20111122
  26. ASPIRIN. [Concomitant]
     Active Substance: ASPIRIN
     Route: 065
     Dates: start: 20130130, end: 20130430
  27. MAGNESIUM OXIDE. [Concomitant]
     Active Substance: MAGNESIUM OXIDE
     Indication: PRODUCT USED FOR UNKNOWN INDICATION
     Route: 065
     Dates: start: 20111122, end: 20120731
  28. EURAX H [Concomitant]
     Indication: PRODUCT USED FOR UNKNOWN INDICATION
     Route: 065
     Dates: start: 20120111, end: 20120113
  29. CEFDITOREN PIVOXIL. [Concomitant]
     Active Substance: CEFDITOREN PIVOXIL
     Indication: ADVERSE EVENT
     Route: 065
     Dates: start: 20140601, end: 20140604
  30. KN1 [Concomitant]
     Indication: ADVERSE EVENT
     Route: 065
     Dates: start: 20130117, end: 20130124
  31. PL GRANULE [Concomitant]
     Route: 065
     Dates: start: 20131204, end: 20131209
  32. PAVRON [Concomitant]
     Route: 065
     Dates: start: 20140531, end: 20140602
  33. PAVRON [Concomitant]
     Route: 065
     Dates: start: 20150106, end: 20150106
  34. SODIUM GUALENATE HYDRATE [Concomitant]
     Active Substance: SODIUM GUALENATE MONOHYDRATE
     Indication: ADVERSE EVENT
     Route: 065
     Dates: start: 20140604, end: 20140610
  35. ESOMEPRAZOLE MAGNESIUM HYDRATE [Concomitant]
     Indication: PRODUCT USED FOR UNKNOWN INDICATION
     Route: 065
     Dates: start: 20141022, end: 20160128
  36. ESOMEPRAZOLE MAGNESIUM HYDRATE [Concomitant]
     Route: 065
     Dates: start: 20160209
  37. CEFEPIME [Concomitant]
     Active Substance: CEFEPIME HYDROCHLORIDE
     Indication: ADVERSE EVENT
     Route: 065
     Dates: start: 20141105, end: 20141112
  38. DOMPERIDONE [Concomitant]
     Active Substance: DOMPERIDONE
     Indication: ADVERSE EVENT
     Route: 065
     Dates: start: 20150304, end: 20150306
  39. MIYA-BM [Concomitant]
     Active Substance: CLOSTRIDIUM BUTYRICUM SPORES STRAIN M-55
     Route: 065
     Dates: start: 20150826, end: 20160128
  40. OXETHAZAINE [Concomitant]
     Active Substance: OXETHAZAINE
     Indication: ADVERSE EVENT
     Route: 065
     Dates: start: 20150729, end: 20150818
  41. ASCORBIC ACID. [Concomitant]
     Active Substance: ASCORBIC ACID
     Indication: ADVERSE EVENT
     Route: 065
     Dates: start: 20160127, end: 20160127
  42. FENTANYL CITRATE. [Concomitant]
     Active Substance: FENTANYL CITRATE
     Indication: ADVERSE EVENT
     Route: 065
     Dates: start: 20160128, end: 20160207
  43. BFLUID [Concomitant]
     Active Substance: AMINO ACIDS\DEXTROSE\ELECTROLYTES NOS\VITAMINS
     Route: 065
     Dates: start: 20160210, end: 20160225
  44. GLUCOSE [Concomitant]
     Active Substance: DEXTROSE
     Indication: ADVERSE EVENT
     Route: 065
     Dates: start: 20160202, end: 20160206
  45. GLYCERIN. [Concomitant]
     Active Substance: GLYCERIN
     Indication: ADVERSE EVENT
     Route: 065
     Dates: start: 20160224, end: 20160430
  46. CARBAZOCHROME SODIUM SULFONATE HYDRATE [Concomitant]
     Indication: ADVERSE EVENT
     Route: 065
     Dates: start: 20160226, end: 20160228
  47. REVLIMID [Suspect]
     Active Substance: LENALIDOMIDE
     Route: 048
     Dates: start: 20160323, end: 20160406
  48. ELOTUZUMAB. [Suspect]
     Active Substance: ELOTUZUMAB
     Indication: PLASMA CELL MYELOMA
     Route: 041
     Dates: start: 20111122
  49. ACICLOVIR [Concomitant]
     Active Substance: ACYCLOVIR
     Indication: PRODUCT USED FOR UNKNOWN INDICATION
     Route: 065
     Dates: start: 20111122
  50. GABAPENTIN. [Concomitant]
     Active Substance: GABAPENTIN
     Indication: ADVERSE EVENT
     Route: 065
     Dates: start: 20120911, end: 20120926
  51. ETODOLAC. [Concomitant]
     Active Substance: ETODOLAC
     Indication: ADVERSE EVENT
     Route: 065
     Dates: start: 20120911, end: 20120926
  52. LEVOFLOXACIN. [Concomitant]
     Active Substance: LEVOFLOXACIN
     Route: 065
     Dates: start: 20150225, end: 20150303
  53. CEFAZOLIN SODIUM. [Concomitant]
     Active Substance: CEFAZOLIN SODIUM
     Indication: ADVERSE EVENT
     Route: 065
     Dates: start: 20130117, end: 20130124
  54. PRANOPROFEN [Concomitant]
     Active Substance: PRANOPROFEN
     Route: 065
     Dates: start: 20140402, end: 20150701
  55. INTAL [Concomitant]
     Active Substance: CROMOLYN SODIUM
     Indication: ADVERSE EVENT
     Route: 065
     Dates: start: 20131204, end: 20141206
  56. CLOPERASTINE HYDROCHLORIDE [Concomitant]
     Active Substance: CLOPERASTINE HYDROCHLORIDE
     Indication: ADVERSE EVENT
     Route: 065
     Dates: start: 20140212, end: 20140217
  57. SODIUM GUALENATE HYDRATE [Concomitant]
     Active Substance: SODIUM GUALENATE MONOHYDRATE
     Route: 065
     Dates: start: 20160128
  58. SODIUM GUALENATE HYDRATE [Concomitant]
     Active Substance: SODIUM GUALENATE MONOHYDRATE
     Route: 065
     Dates: start: 20160328
  59. BIOFERMIN R [Concomitant]
     Active Substance: BACILLUS SUBTILIS\LACTOBACILLUS ACIDOPHILUS\STREPTOCOCCUS FAECAIS
     Indication: ADVERSE EVENT
     Route: 065
     Dates: start: 20140702, end: 20150310
  60. HEPARIN SODIUM. [Concomitant]
     Active Substance: HEPARIN SODIUM
     Indication: ADVERSE EVENT
     Route: 065
     Dates: start: 20141105, end: 20141112
  61. NORMAL SALINE [Concomitant]
     Active Substance: SODIUM CHLORIDE
     Indication: ADVERSE EVENT
     Route: 065
     Dates: start: 20141105, end: 20141105
  62. EDOXABAN TOSILATE HYDRATE [Concomitant]
     Route: 065
     Dates: start: 20160213
  63. ECABET SODIUM HYDRATE [Concomitant]
     Route: 065
     Dates: start: 20151021, end: 20160128
  64. FULCALIQ [Concomitant]
     Active Substance: AMINO ACIDS\CARBOHYDRATES\ELECTROLYTES NOS\VITAMINS
     Indication: ADVERSE EVENT
     Route: 065
     Dates: start: 20160128, end: 20160131
  65. PREDNISOLONE SODIUM SUCCINATE [Concomitant]
     Active Substance: PREDNISOLONE SODIUM SUCCINATE
     Indication: ADVERSE EVENT
     Route: 065
     Dates: start: 20160206, end: 20160210
  66. BROTIZOLAM [Concomitant]
     Active Substance: BROTIZOLAM
     Indication: ADVERSE EVENT
     Route: 065
     Dates: start: 20160302, end: 20160514
  67. ASPIRIN. [Concomitant]
     Active Substance: ASPIRIN
     Indication: PRODUCT USED FOR UNKNOWN INDICATION
     Route: 065
     Dates: start: 20111122, end: 20130109
  68. SENNOSIDE [Concomitant]
     Active Substance: SENNOSIDES
     Indication: ADVERSE EVENT
     Route: 065
     Dates: start: 20111207, end: 20140626
  69. EURAX H [Concomitant]
     Indication: ADVERSE EVENT
     Route: 065
     Dates: start: 20121219, end: 20121230
  70. ZOLEDRONIC ACID HYDRATE [Concomitant]
     Active Substance: ZOLEDRONIC ACID
     Route: 065
     Dates: start: 20120326, end: 20120326
  71. ZOLEDRONIC ACID HYDRATE [Concomitant]
     Active Substance: ZOLEDRONIC ACID
     Route: 065
     Dates: start: 20130911, end: 20130911
  72. PREGABALIN. [Concomitant]
     Active Substance: PREGABALIN
     Route: 065
     Dates: start: 20120920, end: 20160128
  73. LEVOFLOXACIN. [Concomitant]
     Active Substance: LEVOFLOXACIN
     Indication: ADVERSE EVENT
     Route: 065
     Dates: start: 20130509, end: 20130511
  74. LEVOFLOXACIN. [Concomitant]
     Active Substance: LEVOFLOXACIN
     Route: 065
     Dates: start: 20140212, end: 20140216
  75. TIAPROFENIC ACID [Concomitant]
     Active Substance: TIAPROFENIC ACID
     Indication: PRODUCT USED FOR UNKNOWN INDICATION
     Route: 065
     Dates: start: 20130105, end: 20130107
  76. FEXOFENADINE HYDROCHLORIDE. [Concomitant]
     Active Substance: FEXOFENADINE HYDROCHLORIDE
     Route: 065
     Dates: start: 20160824, end: 20160906
  77. FELBINAC [Concomitant]
     Active Substance: FELBINAC
     Indication: ADVERSE EVENT
     Route: 065
     Dates: start: 20141106, end: 20141113
  78. WARFARIN POTASSIUM [Concomitant]
     Active Substance: WARFARIN POTASSIUM
     Route: 065
     Dates: start: 20141126, end: 20150304
  79. URSODEOXYCHOLIC ACID [Concomitant]
     Active Substance: URSODIOL
     Indication: CHOLESTASIS
     Route: 065
     Dates: start: 20141107, end: 20141119
  80. ECABET SODIUM HYDRATE [Concomitant]
     Indication: ADVERSE EVENT
     Route: 065
     Dates: start: 20150701, end: 20150826
  81. ELEJECT [Concomitant]
     Indication: ADVERSE EVENT
     Route: 065
     Dates: start: 20160128, end: 20160131
  82. OMEPRAZOLE SODIUM HYDRATE [Concomitant]
     Indication: PRODUCT USED FOR UNKNOWN INDICATION
     Route: 065
     Dates: start: 20160128, end: 20160208
  83. MIDAZOLAM [Concomitant]
     Active Substance: MIDAZOLAM\MIDAZOLAM HYDROCHLORIDE
     Indication: ADVERSE EVENT
     Route: 065
     Dates: start: 20160128, end: 20160207
  84. DIMETHYL ISOPROPLAZULENE [Concomitant]
     Indication: ADVERSE EVENT
     Route: 065
     Dates: start: 20160128, end: 20160514
  85. BFLUID [Concomitant]
     Active Substance: AMINO ACIDS\DEXTROSE\ELECTROLYTES NOS\VITAMINS
     Indication: ADVERSE EVENT
     Route: 065
     Dates: start: 20160201, end: 20160201
  86. GLUCOSE [Concomitant]
     Active Substance: DEXTROSE
     Route: 065
     Dates: start: 20160226, end: 20160226
  87. ELENTAL [Concomitant]
     Active Substance: AMINO ACIDS\CARBOHYDRATES\MINERALS\SOYBEAN OIL\VITAMINS
     Indication: ADVERSE EVENT
     Route: 065
     Dates: start: 20160216, end: 20160219
  88. GENTAMICIN SULFATE. [Concomitant]
     Active Substance: GENTAMICIN SULFATE
     Indication: PRODUCT USED FOR UNKNOWN INDICATION
     Route: 065
     Dates: start: 20160323, end: 20160329
  89. LOXOPROFEN SODIUM [Concomitant]
     Active Substance: LOXOPROFEN SODIUM
     Indication: PRODUCT USED FOR UNKNOWN INDICATION
     Route: 065
     Dates: start: 20111213
  90. BAKTAR [Concomitant]
     Active Substance: SULFAMETHOXAZOLE\TRIMETHOPRIM
     Route: 065
     Dates: start: 20160210, end: 20160727
  91. FLUCONAZOLE. [Concomitant]
     Active Substance: FLUCONAZOLE
     Route: 065
     Dates: start: 20160213
  92. ASPIRIN. [Concomitant]
     Active Substance: ASPIRIN
     Route: 065
     Dates: start: 20130515, end: 20141104
  93. SODIUM PICOSULFATE [Concomitant]
     Active Substance: SODIUM PICOSULFATE
     Indication: ADVERSE EVENT
     Route: 065
     Dates: start: 20111202, end: 20140626
  94. SODIUM PICOSULFATE [Concomitant]
     Active Substance: SODIUM PICOSULFATE
     Route: 065
     Dates: start: 20160224, end: 20160319
  95. BETAMETHASONE BUTYRATE PROPIONATE [Concomitant]
     Active Substance: BETAMETHASONE BUTYRATE PROPIONATE
     Indication: PRODUCT USED FOR UNKNOWN INDICATION
     Route: 065
     Dates: start: 20120114, end: 20120117
  96. POSTERISAN [Concomitant]
     Active Substance: LIDOCAINE
     Indication: PRODUCT USED FOR UNKNOWN INDICATION
     Route: 065
     Dates: start: 20120701, end: 20120704
  97. LEVOFLOXACIN. [Concomitant]
     Active Substance: LEVOFLOXACIN
     Route: 065
     Dates: start: 20150812, end: 20150818
  98. BROMFENAC SODIUM HYDRATE [Concomitant]
     Indication: ADVERSE EVENT
     Route: 065
     Dates: start: 20130117, end: 20130307
  99. CEFDINIR. [Concomitant]
     Active Substance: CEFDINIR
     Route: 065
     Dates: start: 20150422, end: 20150425
  100. BETAMETHASONE SODIUM PHOSPHATE [Concomitant]
     Active Substance: BETAMETHASONE SODIUM PHOSPHATE
     Indication: ADVERSE EVENT
     Route: 065
     Dates: start: 20130118, end: 20130307
  101. PL GRANULE [Concomitant]
     Route: 065
     Dates: start: 20130703, end: 20130705
  102. PL GRANULE [Concomitant]
     Route: 065
     Dates: start: 20140212, end: 20140217
  103. DEQUALINIUM CHLORIDE [Concomitant]
     Active Substance: DEQUALINIUM CHLORIDE
     Route: 065
     Dates: start: 20131204, end: 20131217
  104. STONA [Concomitant]
     Active Substance: ACETAMINOPHEN\CHLORPHENIRAMINE\DEXTROMETHORPHAN\PHENYLEPHRINE
     Indication: ADVERSE EVENT
     Route: 065
     Dates: start: 20140107, end: 20140107
  105. FURSULTIAMINE HYDROCHLORIDE [Concomitant]
     Active Substance: FURSULTIAMINE HYDROCHLORIDE
     Indication: ADVERSE EVENT
     Route: 065
     Dates: start: 20140507, end: 20160128
  106. SITAFLOXACIN HYDRATE [Concomitant]
     Indication: ADVERSE EVENT
     Route: 065
     Dates: start: 20141113, end: 20141117
  107. EDOXABAN TOSILATE HYDRATE [Concomitant]
     Indication: PRODUCT USED FOR UNKNOWN INDICATION
     Route: 065
     Dates: start: 20150326, end: 20160128
  108. VITAMEDIN [Concomitant]
     Active Substance: CYANOCOBALAMIN\PYRIDOXINE HYDROCHLORIDE\THIAMINE
     Indication: ADVERSE EVENT
     Route: 065
     Dates: start: 20160127, end: 20160127
  109. METHYLPREDNISOLONE SODIUM SUCCINATE. [Concomitant]
     Active Substance: METHYLPREDNISOLONE SODIUM SUCCINATE
     Indication: ADVERSE EVENT
     Route: 065
     Dates: start: 20160128, end: 20160205
  110. PROPOFOL. [Concomitant]
     Active Substance: PROPOFOL
     Indication: ADVERSE EVENT
     Route: 065
     Dates: start: 20160203, end: 20160206
  111. HALOPERIDOL. [Concomitant]
     Active Substance: HALOPERIDOL
     Route: 065
     Dates: start: 20160212, end: 20160221
  112. BROMHEXINE HYDROCHLORIDE [Concomitant]
     Active Substance: BROMHEXINE HYDROCHLORIDE
     Indication: ADVERSE EVENT
     Route: 065
     Dates: start: 20160222
  113. TEPRENONE [Concomitant]
     Active Substance: TEPRENONE
     Indication: PRODUCT USED FOR UNKNOWN INDICATION
     Route: 065
     Dates: start: 20110525, end: 20120115
  114. KETOPROFEN. [Concomitant]
     Active Substance: KETOPROFEN
     Indication: PRODUCT USED FOR UNKNOWN INDICATION
     Route: 065
     Dates: start: 20111130, end: 20111212
  115. SODIUM PICOSULFATE [Concomitant]
     Active Substance: SODIUM PICOSULFATE
     Route: 065
     Dates: start: 20160202, end: 20160203
  116. SENNOSIDE [Concomitant]
     Active Substance: SENNOSIDES
     Route: 065
     Dates: start: 20160224, end: 20160514
  117. HEPARINOID FROM ANIMAL ORGANS [Concomitant]
     Indication: PRODUCT USED FOR UNKNOWN INDICATION
     Route: 065
     Dates: start: 20120104
  118. ZOLEDRONIC ACID HYDRATE [Concomitant]
     Active Substance: ZOLEDRONIC ACID
     Route: 065
     Dates: start: 20140604, end: 20140604
  119. LIDOCAINE. [Concomitant]
     Active Substance: LIDOCAINE
     Indication: PRODUCT USED FOR UNKNOWN INDICATION
     Route: 065
     Dates: start: 20120718, end: 20120731
  120. PREGABALIN. [Concomitant]
     Active Substance: PREGABALIN
     Indication: NEUROPATHY PERIPHERAL
     Route: 065
     Dates: start: 20120730, end: 20120812
  121. MONOAMMONIUM GLYCYRRHIZINATE [Concomitant]
     Active Substance: AMMONIUM GLYCYRRHIZATE
     Indication: ADVERSE EVENT
     Route: 065
     Dates: start: 20120927, end: 20121024
  122. LEVOFLOXACIN. [Concomitant]
     Active Substance: LEVOFLOXACIN
     Indication: PRODUCT USED FOR UNKNOWN INDICATION
     Route: 065
     Dates: start: 20121031, end: 20121102
  123. PL GRANULE [Concomitant]
     Route: 065
     Dates: start: 20140108, end: 20140113
  124. DEQUALINIUM CHLORIDE [Concomitant]
     Active Substance: DEQUALINIUM CHLORIDE
     Indication: ADVERSE EVENT
     Route: 065
     Dates: start: 20130522, end: 20130526
  125. PAVRON [Concomitant]
     Indication: ADVERSE EVENT
     Route: 065
     Dates: start: 20140209, end: 20140211
  126. FEXOFENADINE HYDROCHLORIDE. [Concomitant]
     Active Substance: FEXOFENADINE HYDROCHLORIDE
     Indication: PRODUCT USED FOR UNKNOWN INDICATION
     Route: 065
     Dates: start: 20140226, end: 20151202
  127. BIOFERMIN R [Concomitant]
     Active Substance: BACILLUS SUBTILIS\LACTOBACILLUS ACIDOPHILUS\STREPTOCOCCUS FAECAIS
     Route: 065
     Dates: start: 20150813, end: 20150825
  128. KENKETSU VENILON-I [Concomitant]
     Active Substance: HUMAN IMMUNOGLOBULIN G
     Indication: ADVERSE EVENT
     Route: 065
     Dates: start: 20141105, end: 20141106
  129. SUCRALFATE HYDRATE [Concomitant]
     Indication: ADVERSE EVENT
     Route: 065
     Dates: start: 20150304, end: 20150311
  130. LOPERAMIDE HYDROCHLORIDE. [Concomitant]
     Active Substance: LOPERAMIDE HYDROCHLORIDE
     Indication: ADVERSE EVENT
     Route: 065
     Dates: start: 20150819, end: 20150821
  131. NOREPINEPHRINE [Concomitant]
     Active Substance: NOREPINEPHRINE\NOREPINEPHRINE BITARTRATE
     Indication: ADVERSE EVENT
     Route: 065
     Dates: start: 20160128, end: 20160130
  132. POTASSIUM CHLORIDE. [Concomitant]
     Active Substance: POTASSIUM CHLORIDE
     Indication: ADVERSE EVENT
     Route: 065
     Dates: start: 20160128, end: 20160128
  133. WHITE PETROLATUM [Concomitant]
     Active Substance: PETROLATUM
     Indication: ADVERSE EVENT
     Route: 065
     Dates: start: 20160128, end: 20160514
  134. PREDNISOLONE SODIUM SUCCINATE [Concomitant]
     Active Substance: PREDNISOLONE SODIUM SUCCINATE
     Route: 065
     Dates: start: 20160211, end: 20160414
  135. HALOPERIDOL. [Concomitant]
     Active Substance: HALOPERIDOL
     Indication: ADVERSE EVENT
     Route: 065
     Dates: start: 20160206, end: 20160208
  136. BIOLACTIS [Concomitant]
     Active Substance: LACTOBACILLUS CASEI
     Indication: ADVERSE EVENT
     Route: 065
     Dates: start: 20160210, end: 20160229
  137. INSULIN GLARGINE [Concomitant]
     Active Substance: INSULIN GLARGINE
     Indication: ADVERSE EVENT
     Route: 065
     Dates: start: 20160224, end: 20160227
  138. DEXAMETHASONE. [Suspect]
     Active Substance: DEXAMETHASONE
     Route: 065
     Dates: start: 20160511
  139. LOXOPROFEN SODIUM [Concomitant]
     Active Substance: LOXOPROFEN SODIUM
     Route: 065
     Dates: start: 20110525, end: 20140114
  140. TEPRENONE [Concomitant]
     Active Substance: TEPRENONE
     Indication: ADVERSE EVENT
     Route: 065
     Dates: start: 20120827, end: 20150127
  141. ASPIRIN. [Concomitant]
     Active Substance: ASPIRIN
     Route: 065
     Dates: start: 20150312, end: 20150325
  142. ACETAZOLAMIDE. [Concomitant]
     Active Substance: ACETAZOLAMIDE
     Indication: ADVERSE EVENT
     Route: 065
     Dates: start: 20120508, end: 20120910
  143. ACETAMINOPHEN. [Concomitant]
     Active Substance: ACETAMINOPHEN
     Route: 065
     Dates: start: 20120813, end: 20120826
  144. FUROSEMIDE. [Concomitant]
     Active Substance: FUROSEMIDE
     Indication: ADVERSE EVENT
     Route: 065
     Dates: start: 20120911, end: 20140114
  145. INDOMETACIN [Concomitant]
     Active Substance: INDOMETHACIN
     Indication: PRODUCT USED FOR UNKNOWN INDICATION
     Route: 065
     Dates: start: 20120910, end: 20121010
  146. LEVOFLOXACIN. [Concomitant]
     Active Substance: LEVOFLOXACIN
     Route: 065
     Dates: start: 20140108, end: 20140112
  147. LEVOFLOXACIN. [Concomitant]
     Active Substance: LEVOFLOXACIN
     Route: 065
     Dates: start: 20160210, end: 20160425
  148. CEFDITOREN PIVOXIL. [Concomitant]
     Active Substance: CEFDITOREN PIVOXIL
     Indication: PRODUCT USED FOR UNKNOWN INDICATION
     Route: 065
     Dates: start: 20130105, end: 20130107
  149. LEVOFLOXACIN HEMIHYDRATE [Concomitant]
     Active Substance: LEVOFLOXACIN
     Indication: ADVERSE EVENT
     Route: 065
     Dates: start: 20130117, end: 20130321
  150. PL GRANULE [Concomitant]
     Route: 065
     Dates: start: 20150212, end: 20150217
  151. INTAL [Concomitant]
     Active Substance: CROMOLYN SODIUM
     Indication: PRODUCT USED FOR UNKNOWN INDICATION
     Route: 065
     Dates: start: 20140226, end: 20160125
  152. AMBROXOL HYDROCHLORIDE [Concomitant]
     Active Substance: AMBROXOL HYDROCHLORIDE
     Indication: ADVERSE EVENT
     Route: 065
     Dates: start: 20140212, end: 20140217
  153. BETAMETHASONE VALERATE. [Concomitant]
     Active Substance: BETAMETHASONE VALERATE
     Indication: ADVERSE EVENT
     Route: 065
     Dates: start: 20141118, end: 20141121
  154. SAIREITOU [Concomitant]
     Indication: ADVERSE EVENT
     Route: 065
     Dates: start: 20150311, end: 20150507
  155. PERAMIVIR HYDRATE [Concomitant]
     Indication: ADVERSE EVENT
     Route: 065
     Dates: start: 20160125, end: 20160201
  156. DAIKENCYUTOU [Concomitant]
     Indication: ADVERSE EVENT
     Route: 065
     Dates: start: 20160130, end: 20160207
  157. BISACODYL. [Concomitant]
     Active Substance: BISACODYL
     Indication: ADVERSE EVENT
     Route: 065
     Dates: start: 20160131, end: 20160205
  158. DEXMEDETOMINIDE HYDROCHLORIDE [Concomitant]
     Indication: ADVERSE EVENT
     Route: 065
     Dates: start: 20160206, end: 20160208
  159. ALBUMIN TANNATE [Concomitant]
     Active Substance: ALBUMIN BOVINE\TANNIC ACID
     Indication: ADVERSE EVENT
     Route: 065
     Dates: start: 20160208, end: 20160215
  160. DULOXETINE HYDROCHLORIDE. [Concomitant]
     Active Substance: DULOXETINE HYDROCHLORIDE
     Indication: NEUROPATHY PERIPHERAL
     Route: 065
     Dates: start: 20160322
  161. REVLIMID [Suspect]
     Active Substance: LENALIDOMIDE
     Indication: PLASMA CELL MYELOMA
     Route: 048
     Dates: start: 20111122
  162. DEXAMETHASONE. [Suspect]
     Active Substance: DEXAMETHASONE
     Indication: PLASMA CELL MYELOMA
     Route: 041
     Dates: start: 20111122, end: 20160413
  163. BAKTAR [Concomitant]
     Active Substance: SULFAMETHOXAZOLE\TRIMETHOPRIM
     Indication: PRODUCT USED FOR UNKNOWN INDICATION
     Route: 065
     Dates: start: 20111122
  164. LANSOPRAZOLE. [Concomitant]
     Active Substance: LANSOPRAZOLE
     Indication: PRODUCT USED FOR UNKNOWN INDICATION
     Route: 065
     Dates: start: 20111122, end: 20141021
  165. ACETAMINOPHEN. [Concomitant]
     Active Substance: ACETAMINOPHEN
     Indication: PRODUCT USED FOR UNKNOWN INDICATION
     Route: 065
     Dates: start: 20160125, end: 20160127
  166. INDOMETACIN [Concomitant]
     Active Substance: INDOMETHACIN
     Indication: ADVERSE EVENT
     Route: 065
     Dates: start: 20140412, end: 20160125
  167. LEVOFLOXACIN. [Concomitant]
     Active Substance: LEVOFLOXACIN
     Route: 065
     Dates: start: 20131204, end: 20131208
  168. LEVOFLOXACIN. [Concomitant]
     Active Substance: LEVOFLOXACIN
     Route: 065
     Dates: start: 20150108, end: 20150114
  169. LEVOFLOXACIN. [Concomitant]
     Active Substance: LEVOFLOXACIN
     Route: 065
     Dates: start: 20150309, end: 20150311
  170. LEVOFLOXACIN. [Concomitant]
     Active Substance: LEVOFLOXACIN
     Route: 065
     Dates: start: 20160907, end: 20160920
  171. CEFDINIR. [Concomitant]
     Active Substance: CEFDINIR
     Indication: ADVERSE EVENT
     Route: 065
     Dates: start: 20130118, end: 20130127
  172. FURSULTIAMINE HYDROCHLORIDE [Concomitant]
     Active Substance: FURSULTIAMINE HYDROCHLORIDE
     Route: 065
     Dates: start: 20160407
  173. WARFARIN POTASSIUM [Concomitant]
     Active Substance: WARFARIN POTASSIUM
     Indication: ADVERSE EVENT
     Route: 065
     Dates: start: 20141106, end: 20141125
  174. URSODEOXYCHOLIC ACID [Concomitant]
     Active Substance: URSODIOL
     Indication: PRODUCT USED FOR UNKNOWN INDICATION
     Route: 065
     Dates: start: 20141120, end: 20160128
  175. SOLMAC [Concomitant]
     Indication: ABDOMINAL PAIN UPPER
     Route: 065
     Dates: start: 20150310, end: 20150310
  176. MIYA-BM [Concomitant]
     Active Substance: CLOSTRIDIUM BUTYRICUM SPORES STRAIN M-55
     Indication: ADVERSE EVENT
     Route: 065
     Dates: start: 20150311, end: 20150812
  177. PROCHLORPERAZINE MALEATE. [Concomitant]
     Active Substance: PROCHLORPERAZINE MALEATE
     Indication: ADVERSE EVENT
     Route: 065
     Dates: start: 20150507, end: 20150515
  178. ALCLOMETASONE DIPROPIONATE. [Concomitant]
     Active Substance: ALCLOMETASONE DIPROPIONATE
     Indication: ADVERSE EVENT
     Route: 065
     Dates: start: 20150729, end: 20150817
  179. OLOPATADINE HYDROCHLORIDE. [Concomitant]
     Active Substance: OLOPATADINE HYDROCHLORIDE
     Indication: PRODUCT USED FOR UNKNOWN INDICATION
     Route: 065
     Dates: start: 20151203, end: 20160128
  180. HYDROCORTISONE SODIUM SUCCINATE [Concomitant]
     Active Substance: HYDROCORTISONE SODIUM SUCCINATE
     Indication: ADVERSE EVENT
     Route: 065
     Dates: start: 20160127, end: 20160128
  181. ALBUMINAR [Concomitant]
     Active Substance: ALBUMIN HUMAN
     Indication: ADVERSE EVENT
     Route: 065
     Dates: start: 20160128, end: 20160128
  182. METOCLOPRAMIDE HYDROCHLORIDE. [Concomitant]
     Active Substance: METOCLOPRAMIDE HYDROCHLORIDE
     Indication: ADVERSE EVENT
     Route: 065
     Dates: start: 20160130, end: 20160130
  183. ADSORBIN [Concomitant]
     Active Substance: ALUMINUM SILICATE
     Indication: ADVERSE EVENT
     Route: 065
     Dates: start: 20160208, end: 20160215
  184. RISPERIDONE. [Concomitant]
     Active Substance: RISPERIDONE
     Indication: ADVERSE EVENT
     Route: 065
     Dates: start: 20160208, end: 20160315
  185. NAFTOPIDIL [Concomitant]
     Active Substance: NAFTOPIDIL
     Indication: PRODUCT USED FOR UNKNOWN INDICATION
     Route: 065
     Dates: start: 20160229
  186. TRAZODONE HYDROCHLORIDE. [Concomitant]
     Active Substance: TRAZODONE HYDROCHLORIDE
     Indication: ADVERSE EVENT
     Route: 065
     Dates: start: 20160222, end: 20160514
  187. RINDERON VG [Concomitant]
     Active Substance: BETAMETHASONE VALERATE\GENTAMICIN SULFATE
     Indication: PRODUCT USED FOR UNKNOWN INDICATION
     Route: 065
     Dates: start: 20160323, end: 20160329

REACTIONS (3)
  - Hypoxia [Recovered/Resolved]
  - Pneumonia influenzal [Recovered/Resolved]
  - Organising pneumonia [Recovered/Resolved]

NARRATIVE: CASE EVENT DATE: 20160125
